FAERS Safety Report 9911507 (Version 1)
Quarter: 2014Q1

REPORT INFORMATION
  Report Type: Spontaneous
  Country: IL (occurrence: IL)
  Receive Date: 20140219
  Receipt Date: 20140219
  Transmission Date: 20141002
  Serious: Yes (Other)
  Sender: FDA-Public Use
  Company Number: PHHY2014IL019029

PATIENT
  Sex: Female

DRUGS (1)
  1. RITALIN LA [Suspect]
     Indication: DISTURBANCE IN ATTENTION
     Dosage: 40 MG, DAILY (1 DF)
     Route: 048
     Dates: start: 20140216, end: 20140216

REACTIONS (1)
  - Intentional drug misuse [Recovered/Resolved]
